FAERS Safety Report 21453562 (Version 1)
Quarter: 2022Q4

REPORT INFORMATION
  Report Type: Report from Study
  Country: NL (occurrence: NL)
  Receive Date: 20221013
  Receipt Date: 20221013
  Transmission Date: 20230112
  Serious: Yes (Hospitalization, Other)
  Sender: FDA-Public Use
  Company Number: NL-BRISTOL-MYERS SQUIBB COMPANY-2022-111333

PATIENT
  Age: 71 Year
  Sex: Female
  Weight: 83.3 kg

DRUGS (3)
  1. LENALIDOMIDE [Suspect]
     Active Substance: LENALIDOMIDE
     Indication: Plasma cell myeloma
     Dosage: ON DAYS 1 ? 21
     Route: 048
     Dates: start: 20130924
  2. LENALIDOMIDE [Suspect]
     Active Substance: LENALIDOMIDE
     Route: 048
     Dates: start: 20190426, end: 20220919
  3. PHENETHICILLIN [Concomitant]
     Indication: Antibiotic therapy
     Route: 048

REACTIONS (1)
  - Adenocarcinoma pancreas [Not Recovered/Not Resolved]

NARRATIVE: CASE EVENT DATE: 20220901
